FAERS Safety Report 5091908-5 (Version None)
Quarter: 2006Q3

REPORT INFORMATION
  Report Type: 
  Country: None (occurrence: None)
  Receive Date: 20060825
  Receipt Date: 20060810
  Transmission Date: 20061208
  Serious: Yes (Hospitalization)
  Sender: FDA-Public Use
  Company Number: FR200608000878

PATIENT
  Age: 80 Year
  Sex: Female
  Weight: 60 kg

DRUGS (7)
  1. FORTEO [Suspect]
     Indication: OSTEOPOROSIS
     Dosage: 20 UG, DAILY (1/D),  SUBCUTANEOUS
     Route: 058
     Dates: start: 20041204, end: 20051225
  2. FORTEO PEN 9250MCG/ML) (FORTEO PEN 250MCG/ML (3ML)) PEN DISPOSABLE [Concomitant]
  3. AMLODIPINE BESYLATE [Concomitant]
  4. BISOPROLOL FUMARATE [Concomitant]
  5. ASPIRIN [Concomitant]
  6. FRACTAL (FLUVASTATIN) [Concomitant]
  7. OMEPRAZOLE [Concomitant]

REACTIONS (6)
  - DRUG INTERACTION [None]
  - FALL [None]
  - HYPOTENSION [None]
  - MALAISE [None]
  - VERTIGO [None]
  - VOMITING [None]
